FAERS Safety Report 5211423-5 (Version None)
Quarter: 2006Q4

REPORT INFORMATION
  Report Type: 
  Country: None (occurrence: None)
  Receive Date: 20061115
  Receipt Date: 20060718
  Transmission Date: 20070319
  Serious: No
  Sender: FDA-Public Use
  Company Number: 200614653BWH

PATIENT
  Age: 71 Year
  Sex: Male

DRUGS (5)
  1. NEXAVAR [Suspect]
     Indication: MALIGNANT MELANOMA
     Dosage: 400 MG, BID, ORAL
     Dates: start: 20051101
  2. NEXAVAR [Suspect]
     Indication: MALIGNANT MELANOMA
     Dosage: 400 MG, BID, ORAL
     Dates: start: 20060701
  3. METHADONE HCL [Concomitant]
  4. VICODIN [Concomitant]
  5. VALIUM [Concomitant]

REACTIONS (5)
  - AMNESIA [None]
  - CONSTIPATION [None]
  - FATIGUE [None]
  - IMPAIRED HEALING [None]
  - SLEEP DISORDER [None]
